FAERS Safety Report 8940717 (Version 2)
Quarter: 2012Q4

REPORT INFORMATION
  Report Type: 
  Country: JP (occurrence: JP)
  Receive Date: 20121203
  Receipt Date: 20121206
  Transmission Date: 20130627
  Serious: Yes (Other)
  Sender: FDA-Public Use
  Company Number: PHHY2012JP109621

PATIENT

DRUGS (7)
  1. CICLOSPORIN [Suspect]
     Indication: PUSTULAR PSORIASIS
     Route: 048
     Dates: end: 200809
  2. CICLOSPORIN [Suspect]
     Route: 048
  3. PREDNISOLONE [Concomitant]
     Indication: PUSTULAR PSORIASIS
     Dosage: 30 mg, UNK
  4. PREDNISOLONE [Concomitant]
     Dosage: 60 mg, UNK
  5. PREDNISOLONE [Concomitant]
     Dosage: 7.5 mg, UNK
  6. PREDNISOLONE [Concomitant]
     Dosage: 30 mg, UNK
  7. PREDNISOLONE [Concomitant]
     Dosage: 50 mg, UNK

REACTIONS (1)
  - Renal disorder [Unknown]
